FAERS Safety Report 6690313-5 (Version None)
Quarter: 2010Q2

REPORT INFORMATION
  Report Type: 
  Country: None (occurrence: None)
  Receive Date: 20100421
  Receipt Date: 20100413
  Transmission Date: 20101027
  Serious: Yes (Death)
  Sender: FDA-Public Use
  Company Number: PHHY2010RU23661

PATIENT
  Sex: Female

DRUGS (3)
  1. MYFORTIC [Suspect]
     Route: 048
  2. ATENOLOL [Concomitant]
  3. OMEZ D [Concomitant]

REACTIONS (2)
  - BLOOD BILIRUBIN INCREASED [None]
  - HEPATITIS [None]
